FAERS Safety Report 19922021 (Version 1)
Quarter: 2021Q4

REPORT INFORMATION
  Report Type: Spontaneous
  Country: JP (occurrence: JP)
  Receive Date: 20211006
  Receipt Date: 20211006
  Transmission Date: 20220303
  Serious: Yes (Hospitalization)
  Sender: FDA-Public Use
  Company Number: JP-LUPIN PHARMACEUTICALS INC.-2021-18799

PATIENT
  Age: 46 Year
  Sex: Female
  Weight: 62.8 kg

DRUGS (8)
  1. METHYLPREDNISOLONE [Suspect]
     Active Substance: METHYLPREDNISOLONE
     Indication: Pulmonary alveolar haemorrhage
     Dosage: 1000 MILLIGRAM, QD
     Route: 065
  2. METHYLPREDNISOLONE [Suspect]
     Active Substance: METHYLPREDNISOLONE
     Indication: Immunosuppressant drug therapy
     Dosage: UNK (GRADUALLY TAPERED)
     Route: 065
  3. PREDNISOLONE [Suspect]
     Active Substance: PREDNISOLONE
     Indication: Pulmonary alveolar haemorrhage
     Dosage: 60 MILLIGRAM, QD
     Route: 065
  4. PREDNISOLONE [Suspect]
     Active Substance: PREDNISOLONE
     Indication: Immunosuppressant drug therapy
     Dosage: UNK (GRADUALLY TAPERED)
     Route: 065
  5. TELMISARTAN [Concomitant]
     Active Substance: TELMISARTAN
     Indication: Product used for unknown indication
     Dosage: 20 MILLIGRAM, QD
     Route: 065
  6. CLOTIAZEPAM [Concomitant]
     Active Substance: CLOTIAZEPAM
     Indication: Product used for unknown indication
     Dosage: 15 MILLIGRAM, QD
     Route: 065
  7. CYCLOPHOSPHAMIDE [Concomitant]
     Active Substance: CYCLOPHOSPHAMIDE
     Indication: Pulmonary alveolar haemorrhage
     Dosage: 500 MILLIGRAM, QD
     Route: 065
  8. CYCLOPHOSPHAMIDE [Concomitant]
     Active Substance: CYCLOPHOSPHAMIDE
     Indication: Immunosuppressant drug therapy

REACTIONS (1)
  - Hypertension [Recovering/Resolving]
